FAERS Safety Report 20308067 (Version 1)
Quarter: 2022Q1

REPORT INFORMATION
  Report Type: Spontaneous
  Country: US (occurrence: US)
  Receive Date: 20220107
  Receipt Date: 20220107
  Transmission Date: 20220423
  Serious: No
  Sender: FDA-Public Use
  Company Number: US-ALLERGAN-2142494US

PATIENT
  Sex: Male

DRUGS (1)
  1. QULIPTA [Suspect]
     Active Substance: ATOGEPANT
     Indication: Cluster headache
     Dosage: 60 MG

REACTIONS (2)
  - Off label use [Unknown]
  - Therapeutic product effect incomplete [Unknown]
